FAERS Safety Report 10255265 (Version 3)
Quarter: 2014Q4

REPORT INFORMATION
  Report Type: Spontaneous
  Country: US (occurrence: US)
  Receive Date: 20140624
  Receipt Date: 20141231
  Transmission Date: 20150528
  Serious: Yes (Hospitalization, Other)
  Sender: FDA-Public Use
  Company Number: US-JNJFOC-20140612083

PATIENT
  Age: 42 Year
  Sex: Female

DRUGS (1)
  1. INFLIXIMAB, RECOMBINANT [Suspect]
     Active Substance: INFLIXIMAB
     Indication: CROHN^S DISEASE
     Dosage: 0,2, 6 AND 8 WEEKS FOR APPROXIAMTELY FOR 24 MONTHS.
     Route: 042

REACTIONS (1)
  - Acute promyelocytic leukaemia [Recovering/Resolving]
